FAERS Safety Report 10197135 (Version 1)
Quarter: 2014Q2

REPORT INFORMATION
  Report Type: Spontaneous
  Country: IT (occurrence: IT)
  Receive Date: 20140527
  Receipt Date: 20140527
  Transmission Date: 20141212
  Serious: Yes (Other)
  Sender: FDA-Public Use
  Company Number: IT-PFIZER INC-2014140173

PATIENT
  Age: 58 Year
  Sex: Male

DRUGS (1)
  1. SALAZOPYRIN [Suspect]
     Indication: PSORIATIC ARTHROPATHY
     Dosage: 500 MG, 4X/DAY
     Dates: start: 20140422

REACTIONS (5)
  - Bone pain [Unknown]
  - Asthenia [Unknown]
  - Influenza [Unknown]
  - Blood test abnormal [Unknown]
  - Gastrointestinal disorder [Unknown]
